FAERS Safety Report 10714683 (Version 5)
Quarter: 2015Q2

REPORT INFORMATION
  Report Type: Spontaneous
  Country: JP (occurrence: JP)
  Receive Date: 20150115
  Receipt Date: 20150423
  Transmission Date: 20150821
  Serious: Yes (Hospitalization, Other)
  Sender: FDA-Public Use
  Company Number: JP-CELGENE-JPN-2015012055

PATIENT
  Age: 67 Year
  Sex: Male

DRUGS (11)
  1. BAKTAR [Concomitant]
     Active Substance: SULFAMETHOXAZOLE\TRIMETHOPRIM
     Indication: ANTIVIRAL PROPHYLAXIS
     Route: 048
  2. REVLIMID [Suspect]
     Active Substance: LENALIDOMIDE
     Indication: PLASMA CELL MYELOMA
     Route: 048
     Dates: start: 20130710, end: 2013
  3. LENADEX [Suspect]
     Active Substance: DEXAMETHASONE ACETATE
     Dosage: 5 MILLIGRAM
     Route: 048
     Dates: start: 20141217
  4. REVLIMID [Suspect]
     Active Substance: LENALIDOMIDE
     Route: 048
     Dates: start: 20140205, end: 2014
  5. BAYASPIRIN [Concomitant]
     Active Substance: ASPIRIN
     Indication: THROMBOSIS PROPHYLAXIS
     Route: 048
     Dates: start: 20130710
  6. REVLIMID [Suspect]
     Active Substance: LENALIDOMIDE
     Route: 048
     Dates: start: 20131114
  7. REVLIMID [Suspect]
     Active Substance: LENALIDOMIDE
     Dosage: 1 DOSAGE FORMS
     Route: 048
     Dates: start: 20141217, end: 20150106
  8. LENADEX [Suspect]
     Active Substance: DEXAMETHASONE ACETATE
     Indication: PLASMA CELL MYELOMA
     Dosage: 100 MILLIGRAM
     Route: 048
     Dates: start: 20130710
  9. NORVASC [Concomitant]
     Active Substance: AMLODIPINE BESYLATE
     Indication: PRODUCT USED FOR UNKNOWN INDICATION
     Route: 048
  10. REVLIMID [Suspect]
     Active Substance: LENALIDOMIDE
     Dosage: 20 MILLIGRAM
     Route: 048
     Dates: start: 20141119, end: 2014
  11. OMEPRAZOLE. [Concomitant]
     Active Substance: OMEPRAZOLE
     Indication: PRODUCT USED FOR UNKNOWN INDICATION
     Route: 048

REACTIONS (3)
  - Pulmonary embolism [Recovering/Resolving]
  - Cerebral infarction [Recovering/Resolving]
  - Renal infarct [Recovering/Resolving]

NARRATIVE: CASE EVENT DATE: 20150112
